FAERS Safety Report 6081721-4 (Version None)
Quarter: 2009Q1

REPORT INFORMATION
  Report Type: 
  Country: None (occurrence: None)
  Receive Date: 20090126
  Receipt Date: 20080908
  Transmission Date: 20090719
  Serious: Yes (Hospitalization)
  Sender: FDA-Public Use
  Company Number: WAES 0809USA01154

PATIENT
  Sex: Male

DRUGS (1)
  1. INVANZ [Suspect]
     Indication: CELLULITIS
     Dosage: 1 GM DAILY IV
     Route: 042

REACTIONS (2)
  - HYPERTENSION [None]
  - VOMITING [None]
